FAERS Safety Report 15131464 (Version 1)
Quarter: 2018Q3

REPORT INFORMATION
  Report Type: Spontaneous
  Country: US (occurrence: US)
  Receive Date: 20180615
  Receipt Date: 20180615
  Transmission Date: 20181010
  Serious: Yes (Hospitalization)
  Sender: FDA-Public Use
  Company Number: None

PATIENT
  Age: 82 Year
  Sex: Female
  Weight: 60 kg

DRUGS (11)
  1. RENOVATE [Concomitant]
  2. LEVOTHYROXINE. [Concomitant]
     Active Substance: LEVOTHYROXINE
  3. RANITIDINE. [Concomitant]
     Active Substance: RANITIDINE
  4. APIXABAN [Suspect]
     Active Substance: APIXABAN
     Indication: ATRIAL FIBRILLATION
     Route: 048
  5. GABAPENTIN. [Concomitant]
     Active Substance: GABAPENTIN
  6. SIMVASTATIN. [Concomitant]
     Active Substance: SIMVASTATIN
  7. METHENAMINE [Concomitant]
     Active Substance: METHENAMINE
  8. MIRTAZAPINE. [Concomitant]
     Active Substance: MIRTAZAPINE
  9. CHOLECALCIFEROL [Concomitant]
     Active Substance: CHOLECALCIFEROL
  10. DONEPEZIL. [Concomitant]
     Active Substance: DONEPEZIL
  11. SEVELAMER [Concomitant]
     Active Substance: SEVELAMER

REACTIONS (5)
  - Haemoglobin decreased [None]
  - Faeces discoloured [None]
  - Epistaxis [None]
  - Haematocrit decreased [None]
  - Blood creatinine increased [None]

NARRATIVE: CASE EVENT DATE: 20180419
